FAERS Safety Report 7485413-6 (Version None)
Quarter: 2011Q2

REPORT INFORMATION
  Report Type: 
  Country: None (occurrence: None)
  Receive Date: 20110517
  Receipt Date: 20110512
  Transmission Date: 20111010
  Serious: Yes (Other)
  Sender: FDA-Public Use
  Company Number: GB-ABBOTT-11P-167-0725338-00

PATIENT
  Sex: Female

DRUGS (2)
  1. PENICILLIN [Concomitant]
     Indication: PRODUCT USED FOR UNKNOWN INDICATION
  2. HUMIRA [Suspect]
     Indication: PSORIATIC ARTHROPATHY
     Route: 058

REACTIONS (6)
  - OROPHARYNGEAL PAIN [None]
  - RASH ERYTHEMATOUS [None]
  - RASH [None]
  - PYREXIA [None]
  - RASH GENERALISED [None]
  - FEELING HOT [None]
